FAERS Safety Report 19152853 (Version 1)
Quarter: 2021Q2

REPORT INFORMATION
  Report Type: Spontaneous
  Country: US (occurrence: US)
  Receive Date: 20210417
  Receipt Date: 20210417
  Transmission Date: 20210717
  Serious: Yes (Hospitalization)
  Sender: FDA-Public Use
  Company Number: None

PATIENT
  Age: 69 Year
  Sex: Female
  Weight: 62 kg

DRUGS (3)
  1. BENDAMUSTINE HYDROCHLORIDE. [Suspect]
     Active Substance: BENDAMUSTINE HYDROCHLORIDE
     Dates: end: 20210401
  2. ACALABRUTINIB. [Suspect]
     Active Substance: ACALABRUTINIB
     Dates: end: 20210410
  3. RITUXIMAB (MOAB C3B8 ANTI CD20, CHIMERIC) [Suspect]
     Active Substance: RITUXIMAB
     Dates: end: 20210331

REACTIONS (11)
  - Pyrexia [None]
  - Urinary tract infection [None]
  - Enterococcal infection [None]
  - Pain [None]
  - Tremor [None]
  - Chills [None]
  - COVID-19 immunisation [None]
  - Hypersensitivity [None]
  - SARS-CoV-2 test negative [None]
  - Rash macular [None]
  - Rash erythematous [None]

NARRATIVE: CASE EVENT DATE: 20210410
